FAERS Safety Report 18683175 (Version 1)
Quarter: 2020Q4

REPORT INFORMATION
  Report Type: Spontaneous
  Country: US (occurrence: US)
  Receive Date: 20201230
  Receipt Date: 20201230
  Transmission Date: 20210114
  Serious: Yes (Other)
  Sender: FDA-Public Use
  Company Number: US-LUPIN PHARMACEUTICALS INC.-2020-08085

PATIENT
  Age: 62 Year
  Weight: 89 kg

DRUGS (1)
  1. HYDROXYCHLOROQUINE [Suspect]
     Active Substance: HYDROXYCHLOROQUINE
     Indication: PRODUCT USED FOR UNKNOWN INDICATION
     Dosage: 4.49 MILLIGRAM/KILOGRAM, QD, DAILY DOSAGE: 400MG
     Route: 065

REACTIONS (1)
  - Retinal toxicity [Unknown]
